FAERS Safety Report 17280563 (Version 1)
Quarter: 2020Q1

REPORT INFORMATION
  Report Type: Spontaneous
  Country: US (occurrence: US)
  Receive Date: 20200117
  Receipt Date: 20200117
  Transmission Date: 20200409
  Serious: No
  Sender: FDA-Public Use
  Company Number: US-UCBSA-2019048439

PATIENT
  Age: 89 Year
  Sex: Male
  Weight: 160 kg

DRUGS (2)
  1. KEPPRA [Suspect]
     Active Substance: LEVETIRACETAM
     Indication: OFF LABEL USE
  2. KEPPRA [Suspect]
     Active Substance: LEVETIRACETAM
     Indication: SCROTAL PAIN
     Dosage: UNK
     Route: 048
     Dates: start: 20191025, end: 20191104

REACTIONS (3)
  - Off label use [Unknown]
  - Dizziness [Not Recovered/Not Resolved]
  - Asthenia [Not Recovered/Not Resolved]

NARRATIVE: CASE EVENT DATE: 20191104
